FAERS Safety Report 18870129 (Version 3)
Quarter: 2023Q2

REPORT INFORMATION
  Report Type: Spontaneous
  Country: US (occurrence: US)
  Receive Date: 20210209
  Receipt Date: 20230406
  Transmission Date: 20230722
  Serious: Yes (Other)
  Sender: FDA-Public Use
  Company Number: US-GILEAD-2021-0515544

PATIENT
  Sex: Male
  Weight: 67.6 kg

DRUGS (69)
  1. COMPLERA [Suspect]
     Active Substance: EMTRICITABINE\RILPIVIRINE HYDROCHLORIDE\TENOFOVIR DISOPROXIL FUMARATE
     Indication: HIV infection
     Dosage: UNK
     Route: 048
     Dates: start: 20141230, end: 201511
  2. COMPLERA [Suspect]
     Active Substance: EMTRICITABINE\RILPIVIRINE HYDROCHLORIDE\TENOFOVIR DISOPROXIL FUMARATE
     Dosage: UNK
     Route: 048
     Dates: start: 20141230, end: 201510
  3. STRIBILD [Suspect]
     Active Substance: COBICISTAT\ELVITEGRAVIR\EMTRICITABINE\TENOFOVIR DISOPROXIL FUMARATE
     Indication: HIV infection
     Dosage: UNK
     Route: 065
     Dates: start: 2014
  4. STRIBILD [Suspect]
     Active Substance: COBICISTAT\ELVITEGRAVIR\EMTRICITABINE\TENOFOVIR DISOPROXIL FUMARATE
     Dosage: UNK
     Route: 065
     Dates: start: 20151120, end: 201803
  5. BIKTARVY [Concomitant]
     Active Substance: BICTEGRAVIR SODIUM\EMTRICITABINE\TENOFOVIR ALAFENAMIDE FUMARATE
  6. DESCOVY [Concomitant]
     Active Substance: EMTRICITABINE\TENOFOVIR ALAFENAMIDE FUMARATE
  7. LANTHANUM CARBONATE [Concomitant]
     Active Substance: LANTHANUM CARBONATE
     Indication: Nephropathy
     Dosage: UNK
     Dates: start: 202011
  8. LANTHANUM CARBONATE [Concomitant]
     Active Substance: LANTHANUM CARBONATE
     Dosage: UNK
     Dates: start: 202011, end: 202102
  9. JULUCA [Concomitant]
     Active Substance: DOLUTEGRAVIR SODIUM\RILPIVIRINE HYDROCHLORIDE
  10. PREZCOBIX [Concomitant]
     Active Substance: COBICISTAT\DARUNAVIR ETHANOLATE
  11. TIVICAY [Concomitant]
     Active Substance: DOLUTEGRAVIR SODIUM
  12. ALAVERT ALLERGY [Concomitant]
     Active Substance: LORATADINE
  13. ALBUTEROL SULFATE [Concomitant]
     Active Substance: ALBUTEROL SULFATE
  14. AMITRIPTYLINE [Concomitant]
     Active Substance: AMITRIPTYLINE
  15. AMLODIPINE [Concomitant]
     Active Substance: AMLODIPINE BESYLATE
  16. AMOXICILLIN [Concomitant]
     Active Substance: AMOXICILLIN
  17. ATENOLOL [Concomitant]
     Active Substance: ATENOLOL
  18. CALCITRIOL [Concomitant]
     Active Substance: CALCITRIOL
  19. CALCIUM [Concomitant]
     Active Substance: CALCIUM
  20. CARVEDILOL [Concomitant]
     Active Substance: CARVEDILOL
  21. CEFDINIR [Concomitant]
     Active Substance: CEFDINIR
  22. CEPHALEXIN HYDROCHLORIDE [Concomitant]
     Active Substance: CEPHALEXIN HYDROCHLORIDE
  23. CHOLESTYRAMINE [Concomitant]
     Active Substance: CHOLESTYRAMINE
  24. CIPROFLOXACIN [Concomitant]
     Active Substance: CIPROFLOXACIN
  25. COLESTIPOL [Concomitant]
     Active Substance: COLESTIPOL
  26. DICLOFENAC POTASSIUM [Concomitant]
     Active Substance: DICLOFENAC POTASSIUM
  27. DICYCLOMINE HYDROCHLORIDE [Concomitant]
     Active Substance: DICYCLOMINE HYDROCHLORIDE
  28. DIPHENHYDRAMINE [Concomitant]
     Active Substance: DIPHENHYDRAMINE
  29. DULOXETINE [Concomitant]
     Active Substance: DULOXETINE
  30. FAMOTIDINE [Concomitant]
     Active Substance: FAMOTIDINE
  31. FIASP [Concomitant]
     Active Substance: INSULIN ASPART
  32. FLUCONAZOLE [Concomitant]
     Active Substance: FLUCONAZOLE
  33. HYDROCODONE [Concomitant]
     Active Substance: HYDROCODONE
  34. IBUPROFEN [Concomitant]
     Active Substance: IBUPROFEN
  35. IMODIUM A-D [Concomitant]
     Active Substance: LOPERAMIDE HYDROCHLORIDE
  36. LISINOPRIL [Concomitant]
     Active Substance: LISINOPRIL
  37. LOPERAMIDE [Concomitant]
     Active Substance: LOPERAMIDE
  38. LOSARTAN [Concomitant]
     Active Substance: LOSARTAN
  39. MESALAMINE [Concomitant]
     Active Substance: MESALAMINE
  40. METHOCARBAMOL [Concomitant]
     Active Substance: METHOCARBAMOL
  41. METOCLOPRAMIDE [Concomitant]
     Active Substance: METOCLOPRAMIDE
  42. METRONIDAZOLE [Concomitant]
     Active Substance: METRONIDAZOLE
  43. MIRTAZAPINE [Concomitant]
     Active Substance: MIRTAZAPINE
  44. MUPIROCIN [Concomitant]
     Active Substance: MUPIROCIN
  45. NAPROXEN [Concomitant]
     Active Substance: NAPROXEN
  46. NOVOLOG [Concomitant]
     Active Substance: INSULIN ASPART
  47. NYSTATIN [Concomitant]
     Active Substance: NYSTATIN
  48. OMEPRAZOLE [Concomitant]
     Active Substance: OMEPRAZOLE
  49. ONDANSETRON [Concomitant]
     Active Substance: ONDANSETRON
  50. OSELTAMIVIR [Concomitant]
     Active Substance: OSELTAMIVIR
  51. OXYCODONE [Concomitant]
     Active Substance: OXYCODONE
  52. PANTOPRAZOLE [Concomitant]
     Active Substance: PANTOPRAZOLE
  53. PRAVASTATIN [Concomitant]
     Active Substance: PRAVASTATIN
  54. PREDNISONE [Concomitant]
     Active Substance: PREDNISONE
  55. PROAIR HFA [Concomitant]
     Active Substance: ALBUTEROL SULFATE
  56. PROMETHAZINE [Concomitant]
     Active Substance: PROMETHAZINE HYDROCHLORIDE
  57. RAMIPRIL [Concomitant]
     Active Substance: RAMIPRIL
  58. RANITIDINE [Concomitant]
     Active Substance: RANITIDINE
  59. ROSUVASTATIN [Concomitant]
     Active Substance: ROSUVASTATIN
  60. SODIUM BICARBONATE [Concomitant]
     Active Substance: SODIUM BICARBONATE
     Indication: Antacid therapy
     Dosage: UNK
     Dates: start: 202006, end: 202008
  61. SUCRALFATE [Concomitant]
     Active Substance: SUCRALFATE
  62. TIZANIDINE [Concomitant]
     Active Substance: TIZANIDINE
  63. TRESIBA [Concomitant]
     Active Substance: INSULIN DEGLUDEC
  64. TRULANCE [Concomitant]
     Active Substance: PLECANATIDE
  65. VANCOMYCIN [Concomitant]
     Active Substance: VANCOMYCIN
  66. VENTOLIN [Concomitant]
     Active Substance: ALBUTEROL SULFATE
  67. XIFAXAN [Concomitant]
     Active Substance: RIFAXIMIN
  68. VALACYCLOVIR HYDROCHLORIDE [Concomitant]
     Active Substance: VALACYCLOVIR HYDROCHLORIDE
  69. MICROLET [ETHINYLESTRADIOL;GESTODENE] [Concomitant]

REACTIONS (9)
  - Chronic kidney disease [Not Recovered/Not Resolved]
  - End stage renal disease [Not Recovered/Not Resolved]
  - Multiple fractures [Recovered/Resolved]
  - Emotional distress [Not Recovered/Not Resolved]
  - Anhedonia [Unknown]
  - Anxiety [Not Recovered/Not Resolved]
  - Pain [Not Recovered/Not Resolved]
  - Depression [Not Recovered/Not Resolved]
  - Abnormal dreams [Unknown]

NARRATIVE: CASE EVENT DATE: 20140101
